FAERS Safety Report 11081114 (Version 3)
Quarter: 2015Q3

REPORT INFORMATION
  Report Type: Spontaneous
  Country: US (occurrence: US)
  Receive Date: 20150501
  Receipt Date: 20150702
  Transmission Date: 20151125
  Serious: No
  Sender: FDA-Public Use
  Company Number: US-PFIZER INC-2015149822

PATIENT
  Age: 55 Year
  Sex: Female

DRUGS (1)
  1. NEURONTIN [Suspect]
     Active Substance: GABAPENTIN
     Indication: FIBROMYALGIA
     Dosage: UNK
     Route: 048
     Dates: start: 2005

REACTIONS (3)
  - Irritability [Recovered/Resolved]
  - Product use issue [Unknown]
  - Drug hypersensitivity [Unknown]
